FAERS Safety Report 5688917-1 (Version None)
Quarter: 2008Q1

REPORT INFORMATION
  Report Type: 
  Country: None (occurrence: None)
  Receive Date: 20080331
  Receipt Date: 20080320
  Transmission Date: 20080703
  Serious: Yes (Hospitalization)
  Sender: FDA-Public Use
  Company Number: US-JNJFOC-20080306393

PATIENT
  Age: 76 Year
  Sex: Female

DRUGS (16)
  1. FENTANYL CITRATE [Suspect]
     Route: 042
  2. FENTANYL CITRATE [Suspect]
     Route: 042
  3. FENTANYL CITRATE [Suspect]
     Route: 042
  4. FENTANYL CITRATE [Suspect]
     Dosage: 2 X 100 UG CONSECUTIVE DOSES GIVEN AT AN INTERVAL OF 30 MINUTES EACH
     Route: 042
  5. FENTANYL CITRATE [Suspect]
     Indication: PAIN
     Route: 042
  6. FENTANYL [Suspect]
     Route: 062
  7. FENTANYL [Suspect]
     Route: 062
  8. FENTANYL [Suspect]
     Indication: PAIN
     Route: 062
  9. GABAPENTIN [Concomitant]
     Indication: PAIN
     Route: 065
  10. OLANZAPINE [Concomitant]
     Indication: DRUG USE FOR UNKNOWN INDICATION
     Route: 065
  11. ACETAMINOPHEN [Concomitant]
     Indication: PAIN
     Route: 065
  12. KETOROLAC [Concomitant]
     Indication: DRUG USE FOR UNKNOWN INDICATION
     Route: 042
  13. HALOPERIDOL [Concomitant]
     Indication: DRUG USE FOR UNKNOWN INDICATION
     Route: 042
  14. TRAMADOL HCL [Concomitant]
     Indication: DRUG USE FOR UNKNOWN INDICATION
     Route: 048
  15. ACETAMINOPHEN AND HYDROCODONE BITARTRATE [Concomitant]
     Indication: DRUG USE FOR UNKNOWN INDICATION
     Route: 065
  16. IBUPROFEN [Concomitant]
     Indication: DRUG USE FOR UNKNOWN INDICATION
     Route: 065

REACTIONS (14)
  - ABNORMAL BEHAVIOUR [None]
  - ALLODYNIA [None]
  - DELIRIUM [None]
  - EMOTIONAL DISTRESS [None]
  - HALLUCINATION [None]
  - HYPERAESTHESIA [None]
  - HYPOAESTHESIA [None]
  - HYPOTENSION [None]
  - LETHARGY [None]
  - MUSCULOSKELETAL STIFFNESS [None]
  - MYOCLONUS [None]
  - PAIN [None]
  - PAIN IN EXTREMITY [None]
  - SOMNOLENCE [None]
